FAERS Safety Report 19455609 (Version 1)
Quarter: 2021Q2

REPORT INFORMATION
  Report Type: Spontaneous
  Country: US (occurrence: US)
  Receive Date: 20210623
  Receipt Date: 20210623
  Transmission Date: 20210717
  Serious: No
  Sender: FDA-Public Use
  Company Number: None

PATIENT
  Age: 56 Year
  Sex: Female

DRUGS (1)
  1. DIMETHYL FUM240MG DRCAP [Suspect]
     Active Substance: DIMETHYL FUMARATE
     Route: 048

REACTIONS (8)
  - Hallucination, auditory [None]
  - Memory impairment [None]
  - Hemiparesis [None]
  - Personality change [None]
  - Clumsiness [None]
  - Visual impairment [None]
  - Thinking abnormal [None]
  - Confusional state [None]

NARRATIVE: CASE EVENT DATE: 20210623
